FAERS Safety Report 15318438 (Version 2)
Quarter: 2018Q3

REPORT INFORMATION
  Report Type: Spontaneous
  Country: US (occurrence: US)
  Receive Date: 20180825
  Receipt Date: 20180904
  Transmission Date: 20181010
  Serious: Yes (Other)
  Sender: FDA-Public Use
  Company Number: US-009507513-1808USA007993

PATIENT
  Sex: Male
  Weight: 64.4 kg

DRUGS (17)
  1. CARISOPRODOL. [Concomitant]
     Active Substance: CARISOPRODOL
  2. DONEPEZIL. [Concomitant]
     Active Substance: DONEPEZIL
  3. OMEPRAZOLE. [Concomitant]
     Active Substance: OMEPRAZOLE
  4. QUETIAPINE FUMARATE. [Concomitant]
     Active Substance: QUETIAPINE FUMARATE
  5. MIRTAZAPINE. [Concomitant]
     Active Substance: MIRTAZAPINE
  6. TAMSULOSIN HYDROCHLORIDE. [Concomitant]
     Active Substance: TAMSULOSIN HYDROCHLORIDE
  7. HYDROCHLOROTHIAZIDE (+) LOSARTAN POTASSIUM [Concomitant]
     Active Substance: HYDROCHLOROTHIAZIDE\LOSARTAN POTASSIUM
  8. INTRON A [Suspect]
     Active Substance: INTERFERON ALFA-2B
     Indication: LUNG CARCINOMA CELL TYPE UNSPECIFIED STAGE 0
     Dosage: 18MM UNIT /3ML MDV (300,000 UNITS( 0.05ML)),THREE TIMES WEEKLY
     Route: 023
  9. CEFADROXIL. [Concomitant]
     Active Substance: CEFADROXIL
  10. LAMOTRIGINE. [Concomitant]
     Active Substance: LAMOTRIGINE
  11. MIDODRINE HYDROCHLORIDE. [Concomitant]
     Active Substance: MIDODRINE HYDROCHLORIDE
  12. POTASSIUM (UNSPECIFIED) [Concomitant]
     Active Substance: POTASSIUM
  13. FLUCONAZOLE. [Concomitant]
     Active Substance: FLUCONAZOLE
  14. GILOTRIF [Concomitant]
     Active Substance: AFATINIB
  15. ATORVASTATIN [Concomitant]
     Active Substance: ATORVASTATIN
  16. IPRATROPIUM BROMIDE. [Concomitant]
     Active Substance: IPRATROPIUM BROMIDE
  17. ALPRAZOLAM. [Concomitant]
     Active Substance: ALPRAZOLAM

REACTIONS (5)
  - Nausea [Unknown]
  - Decreased appetite [Unknown]
  - Rash [Unknown]
  - Haemorrhage [Unknown]
  - Agitation [Unknown]
